FAERS Safety Report 5362386-3 (Version None)
Quarter: 2007Q2

REPORT INFORMATION
  Report Type: 
  Country: None (occurrence: None)
  Receive Date: 20070619
  Receipt Date: 20050926
  Transmission Date: 20071010
  Serious: Yes (Hospitalization, Disabling, Other)
  Sender: FDA-Public Use
  Company Number: IN-ASTRAZENECA-2004AP03560

PATIENT
  Age: 17699 Day
  Sex: Male

DRUGS (9)
  1. IRESSA [Suspect]
     Indication: NON-SMALL CELL LUNG CANCER
     Route: 048
     Dates: start: 20040503, end: 20040702
  2. IRESSA [Suspect]
     Indication: LUNG ADENOCARCINOMA
     Route: 048
     Dates: start: 20040503, end: 20040702
  3. RANITIDINE [Concomitant]
     Dates: start: 20031119
  4. MULTIVITAMIN [Concomitant]
     Dates: start: 20031119
  5. IRON [Concomitant]
     Dates: start: 20031119
  6. SALBUTAMOL [Concomitant]
     Indication: ASTHMA
     Route: 055
  7. STEROID [Concomitant]
     Indication: ASTHMA
     Route: 055
  8. DOCETAXEL [Concomitant]
     Indication: CHEMOTHERAPY
     Dosage: 1ST LINE AND 2ND PLATIN BASED
     Dates: start: 20031101, end: 20040501
  9. GEMCITABINE [Concomitant]
     Indication: CHEMOTHERAPY
     Dosage: 1ST LINE AND 2ND PLATIN BASED. SIX CYCLES
     Dates: start: 20031101, end: 20040501

REACTIONS (1)
  - DEMYELINATION [None]
